FAERS Safety Report 7718511-X (Version None)
Quarter: 2011Q3

REPORT INFORMATION
  Report Type: 
  Country: None (occurrence: None)
  Receive Date: 20110830
  Receipt Date: 20110829
  Transmission Date: 20111222
  Serious: Yes (Other)
  Sender: FDA-Public Use
  Company Number: US-PFIZER INC-2011200808

PATIENT
  Sex: Female
  Weight: 136 kg

DRUGS (5)
  1. GABAPENTIN [Concomitant]
     Indication: EPILEPSY
     Dosage: 200 MG, 1X/DAY
  2. MEDROXYPROGESTERONE ACETATE [Suspect]
     Indication: OFF LABEL USE
     Dosage: UNK
     Route: 058
     Dates: start: 20100201, end: 20101201
  3. MEDROXYPROGESTERONE ACETATE [Suspect]
     Indication: CONVULSION
     Dosage: UNK
     Route: 058
     Dates: start: 20110501
  4. KEPPRA [Concomitant]
     Indication: EPILEPSY
     Dosage: 1000 MG, 1X/DAY,  AT NIGHT
  5. TEGRETOL [Concomitant]
     Indication: EPILEPSY
     Dosage: 200MG TWO AND HALF TABLETS TWO TIMES A DAY

REACTIONS (3)
  - HEADACHE [None]
  - MENORRHAGIA [None]
  - DRUG INEFFECTIVE FOR UNAPPROVED INDICATION [None]
